FAERS Safety Report 20022273 (Version 10)
Quarter: 2022Q2

REPORT INFORMATION
  Report Type: Report from Study
  Country: DE (occurrence: None)
  Receive Date: 20211102
  Receipt Date: 20220518
  Transmission Date: 20220721
  Serious: Yes (Hospitalization)
  Sender: FDA-Public Use
  Company Number: DE-ROCHE-2943002

PATIENT
  Age: 34 Year
  Sex: Female
  Weight: 57 kg

DRUGS (23)
  1. ATEZOLIZUMAB [Suspect]
     Active Substance: ATEZOLIZUMAB
     Indication: Triple negative breast cancer
     Dosage: DATE OF LAST DOSE PRIOR TO SAE: 19/AUG/2021
     Route: 042
     Dates: start: 20210819
  2. PACLITAXEL [Suspect]
     Active Substance: PACLITAXEL
     Indication: Triple negative breast cancer
     Dosage: DATE OF LAST DOSE PRIOR TO SAE: 22/OCT/2021
     Route: 042
     Dates: start: 20210819
  3. CARBOPLATIN [Suspect]
     Active Substance: CARBOPLATIN
     Indication: Triple negative breast cancer
     Dosage: DATE OF LAST DOSE PRIOR TO SAE: 22/OCT/2021?SUBSEQUENT DOSE 29/OCT/2021
     Route: 042
     Dates: start: 20210819
  4. GANIRELIX ACETATE [Concomitant]
     Active Substance: GANIRELIX ACETATE
     Dates: start: 20210731, end: 20210809
  5. CHOLECALCIFEROL [Concomitant]
     Active Substance: CHOLECALCIFEROL
     Dates: start: 20210819
  6. CHOLECALCIFEROL [Concomitant]
     Active Substance: CHOLECALCIFEROL
     Dates: start: 20210818, end: 20210902
  7. CHOLECALCIFEROL [Concomitant]
     Active Substance: CHOLECALCIFEROL
     Dates: start: 20210902
  8. PYRIDOXINE [Concomitant]
     Active Substance: PYRIDOXINE
     Dates: start: 20210819
  9. THIAMINE [Concomitant]
     Active Substance: THIAMINE
     Dates: start: 20210819
  10. THIAMINE [Concomitant]
     Active Substance: THIAMINE
     Dates: start: 20210902
  11. ONDANSETRON [Concomitant]
     Active Substance: ONDANSETRON
     Dates: start: 20210819
  12. ONDANSETRON [Concomitant]
     Active Substance: ONDANSETRON
     Dates: start: 20210819
  13. METOCLOPRAMIDE [Concomitant]
     Active Substance: METOCLOPRAMIDE
     Dates: start: 20210819
  14. METOCLOPRAMIDE [Concomitant]
     Active Substance: METOCLOPRAMIDE
     Dates: start: 20211031, end: 20211104
  15. GRANISETRONE [Concomitant]
     Dates: start: 20210819
  16. CLEMASTINE [Concomitant]
     Active Substance: CLEMASTINE
     Dates: start: 20210819
  17. DEXAMETHASONE [Concomitant]
     Active Substance: DEXAMETHASONE
     Dates: start: 20210819
  18. PANTOPRAZOLE [Concomitant]
     Active Substance: PANTOPRAZOLE
     Dates: start: 20210819
  19. TRIPTORELIN ACETATE [Concomitant]
     Active Substance: TRIPTORELIN ACETATE
     Dates: start: 20210809, end: 20210809
  20. APREPITANT [Concomitant]
     Active Substance: APREPITANT
     Dates: start: 20210826
  21. GOSERELIN ACETATE [Concomitant]
     Active Substance: GOSERELIN ACETATE
     Dates: start: 20210813
  22. FILGRASTIM [Concomitant]
     Active Substance: FILGRASTIM
     Dates: start: 20210912
  23. POTASSIUM CHLORIDE [Concomitant]
     Active Substance: POTASSIUM CHLORIDE
     Dates: start: 20211031, end: 20211104

REACTIONS (1)
  - Pyrexia [Recovered/Resolved]

NARRATIVE: CASE EVENT DATE: 20211008
